FAERS Safety Report 10816312 (Version 1)
Quarter: 2015Q1

REPORT INFORMATION
  Report Type: Spontaneous
  Country: US (occurrence: US)
  Receive Date: 20150218
  Receipt Date: 20150218
  Transmission Date: 20150721
  Serious: No
  Sender: FDA-Public Use
  Company Number: US-ABBVIE-14K-163-1283076-00

PATIENT
  Age: 51 Year
  Sex: Female

DRUGS (1)
  1. HUMIRA [Suspect]
     Active Substance: ADALIMUMAB
     Indication: PSORIASIS
     Dates: start: 201407

REACTIONS (4)
  - Blood creatinine decreased [Unknown]
  - Nausea [Recovering/Resolving]
  - Vomiting [Recovering/Resolving]
  - Lymphocyte count decreased [Unknown]

NARRATIVE: CASE EVENT DATE: 20140903
